FAERS Safety Report 8114486 (Version 3)
Quarter: 2013Q1

REPORT INFORMATION
  Report Type: Spontaneous
  Country: US (occurrence: US)
  Receive Date: 20110831
  Receipt Date: 20130213
  Transmission Date: 20140127
  Serious: Yes (Hospitalization, Other)
  Sender: FDA-Public Use
  Company Number: US-ELI_LILLY_AND_COMPANY-US201108006582

PATIENT
  Age: 81 Year
  Sex: Female
  Weight: 70.3 kg

DRUGS (10)
  1. FORTEO [Suspect]
     Indication: OSTEOPOROSIS
     Dosage: 20 UG, QD
     Route: 058
     Dates: start: 20101130
  2. FORTEO [Suspect]
     Dosage: 20 UG, QD
     Route: 058
     Dates: start: 20120703
  3. VITAMIN D [Concomitant]
     Dosage: 5000 U, OTHER
  4. IRON SULFATE [Concomitant]
     Dosage: 375 MG, BID
  5. CITRACAL [Concomitant]
     Dosage: UNK, QD
  6. LORAZEPAM [Concomitant]
     Indication: AGITATION
     Dosage: 0.5 MG, PRN
  7. FENTANYL [Concomitant]
     Dosage: UNK, OTHER
     Route: 062
  8. BABY ASPIRIN [Concomitant]
     Dosage: 81 MG, QD
  9. ENABLEX                            /01760401/ [Concomitant]
     Dosage: 15 MG, QD
  10. LASIX [Concomitant]
     Indication: OEDEMA
     Dosage: 20 MG, PRN

REACTIONS (6)
  - Cardiomegaly [Recovered/Resolved]
  - Fall [Recovered/Resolved]
  - Urinary tract infection [Recovered/Resolved]
  - Dementia [Not Recovered/Not Resolved]
  - Fall [Recovered/Resolved]
  - Joint swelling [Recovered/Resolved]
